FAERS Safety Report 4683926-3 (Version None)
Quarter: 2005Q2

REPORT INFORMATION
  Report Type: 
  Country: None (occurrence: None)
  Receive Date: 20050602
  Receipt Date: 20050323
  Transmission Date: 20051028
  Serious: No
  Sender: FDA-Public Use
  Company Number: USA050188174

PATIENT
  Age: 54 Year
  Sex: Female

DRUGS (5)
  1. CYMBALTA [Suspect]
     Indication: DYSTHYMIC DISORDER
     Dosage: 60 MG
     Dates: start: 20040909, end: 20050105
  2. ATIVAN [Concomitant]
  3. ATARAX (ALPRAZOLAM DUM) [Concomitant]
  4. . [Concomitant]
  5. FEMHRT [Concomitant]

REACTIONS (1)
  - BLOOD PRESSURE INCREASED [None]
